FAERS Safety Report 8365281-0 (Version None)
Quarter: 2012Q2

REPORT INFORMATION
  Report Type: 
  Country: None (occurrence: None)
  Receive Date: 20120516
  Receipt Date: 20120508
  Transmission Date: 20120825
  Serious: Yes (Life-Threatening)
  Sender: FDA-Public Use
  Company Number: TR-PFIZER INC-2012113185

PATIENT
  Age: 62 Year
  Sex: Female

DRUGS (5)
  1. DEXAMETHASONE [Concomitant]
     Dosage: 20 MG, 12 HOUR AND 1 HOUR BEFORE PACLITAXEL
     Route: 048
  2. PACLITAXEL [Suspect]
     Indication: OVARIAN CANCER STAGE III
     Dosage: 175 MG/M2, OVER 3 HOUR
     Route: 042
  3. CARBOPLATIN [Concomitant]
     Dosage: AUC=5, OVER 1 HOUR
     Route: 042
  4. RANITIDINE [Concomitant]
     Dosage: 300 MG, 1 HOUR BEFORE PACLITAXEL
     Route: 042
  5. ONDANSETRON [Concomitant]
     Dosage: 8 MG, 30 MIN BEFORE PACLITAXEL
     Route: 042

REACTIONS (1)
  - ENCEPHALOPATHY [None]
